FAERS Safety Report 5348942-7 (Version None)
Quarter: 2007Q2

REPORT INFORMATION
  Report Type: 
  Country: None (occurrence: None)
  Receive Date: 20070607
  Receipt Date: 20070530
  Transmission Date: 20071010
  Serious: Yes (Other)
  Sender: FDA-Public Use
  Company Number: PHBS2007BR05032

PATIENT
  Age: 29 Year
  Sex: Female

DRUGS (4)
  1. FORASEQ [Suspect]
     Indication: ASTHMA
     Dosage: UNK, BID
  2. PREDNISOLONE [Concomitant]
     Indication: ASTHMA
     Dosage: 1 DF, PRN
     Route: 048
     Dates: start: 20070101, end: 20070201
  3. ATROVENT [Concomitant]
  4. BEROTEC [Concomitant]

REACTIONS (3)
  - CAESAREAN SECTION [None]
  - DRUG EXPOSURE DURING PREGNANCY [None]
  - NORMAL NEWBORN [None]
